FAERS Safety Report 4940438-7 (Version None)
Quarter: 2006Q1

REPORT INFORMATION
  Report Type: 
  Country: None (occurrence: None)
  Receive Date: 20060131
  Receipt Date: 20051122
  Transmission Date: 20060701
  Serious: No
  Sender: FDA-Public Use
  Company Number: 200520168US

PATIENT
  Sex: Female

DRUGS (1)
  1. KETEK [Suspect]
     Indication: BRONCHITIS
     Dosage: BID PO
     Route: 048
     Dates: start: 20051121

REACTIONS (1)
  - DRUG INEFFECTIVE [None]
